FAERS Safety Report 17671336 (Version 1)
Quarter: 2020Q2

REPORT INFORMATION
  Report Type: Spontaneous
  Country: ES (occurrence: ES)
  Receive Date: 20200415
  Receipt Date: 20200415
  Transmission Date: 20200713
  Serious: Yes (Other)
  Sender: FDA-Public Use
  Company Number: ES-009507513-2004ESP004093

PATIENT
  Age: 69 Year
  Sex: Female
  Weight: 83.5 kg

DRUGS (1)
  1. REXER FLAS [Suspect]
     Active Substance: MIRTAZAPINE
     Indication: ANXIETY
     Dosage: 30 MILLIGRAM, QD
     Route: 048
     Dates: start: 20200128, end: 20200130

REACTIONS (3)
  - Disorientation [Recovered/Resolved]
  - Hallucination, visual [Recovered/Resolved]
  - Disturbance in attention [Recovered/Resolved]

NARRATIVE: CASE EVENT DATE: 20200129
